FAERS Safety Report 26101561 (Version 1)
Quarter: 2025Q4

REPORT INFORMATION
  Report Type: Spontaneous
  Country: GB (occurrence: GB)
  Receive Date: 20251128
  Receipt Date: 20251128
  Transmission Date: 20260117
  Serious: Yes (Other)
  Sender: RANBAXY
  Company Number: GB-MHRA-MED-202511140954136740-VLCRF

PATIENT
  Age: 60 Year
  Sex: Female
  Weight: 68 kg

DRUGS (2)
  1. IMIQUIMOD [Suspect]
     Active Substance: IMIQUIMOD
     Indication: Product used for unknown indication
     Dosage: UNK,5%
     Route: 065
     Dates: start: 20250925
  2. IMIQUIMOD [Concomitant]
     Active Substance: IMIQUIMOD
     Indication: Vulvovaginal erythema
     Dosage: UNK
     Route: 065
     Dates: start: 20250925

REACTIONS (2)
  - Medication error [Unknown]
  - Skin ulcer [Not Recovered/Not Resolved]

NARRATIVE: CASE EVENT DATE: 20250930
